FAERS Safety Report 8469675-4 (Version None)
Quarter: 2012Q2

REPORT INFORMATION
  Report Type: 
  Country: None (occurrence: None)
  Receive Date: 20120626
  Receipt Date: 20120620
  Transmission Date: 20120825
  Serious: Yes (Other)
  Sender: FDA-Public Use
  Company Number: CA-ROCHE-GNE310312

PATIENT
  Sex: Female
  Weight: 102.11 kg

DRUGS (9)
  1. XOLAIR [Suspect]
     Route: 058
     Dates: start: 20090925
  2. XOLAIR [Suspect]
     Route: 058
     Dates: start: 20091106
  3. XOLAIR [Suspect]
     Route: 058
     Dates: start: 20090812
  4. ADVAIR DISKUS 100/50 [Concomitant]
     Indication: PRODUCT USED FOR UNKNOWN INDICATION
  5. PREDNISONE TAB [Concomitant]
     Indication: PRODUCT USED FOR UNKNOWN INDICATION
     Dosage: TAPERING TO 5 MG WEEKLY
  6. FLOVENT [Concomitant]
  7. SINGULAIR [Concomitant]
     Indication: PRODUCT USED FOR UNKNOWN INDICATION
  8. XOLAIR [Suspect]
     Indication: ASTHMA
     Route: 058
     Dates: start: 20091208
  9. XOLAIR [Suspect]
     Route: 058
     Dates: start: 20091009

REACTIONS (14)
  - INFECTION [None]
  - RASH [None]
  - NASOPHARYNGITIS [None]
  - LUNG INFECTION [None]
  - ASTHMA [None]
  - URTICARIA [None]
  - SEASONAL ALLERGY [None]
  - MALAISE [None]
  - RESPIRATORY DISTRESS [None]
  - STRESS [None]
  - INSOMNIA [None]
  - SWELLING FACE [None]
  - DYSPNOEA [None]
  - EYE SWELLING [None]
